FAERS Safety Report 25041338 (Version 1)
Quarter: 2025Q1

REPORT INFORMATION
  Report Type: Spontaneous
  Country: IN (occurrence: None)
  Receive Date: 20250305
  Receipt Date: 20250305
  Transmission Date: 20250409
  Serious: Yes (Other)
  Sender: INFORLIFE
  Company Number: IN-INFO-20250040

PATIENT
  Age: 30 Year
  Sex: Male

DRUGS (6)
  1. MIDAZOLAM [Suspect]
     Active Substance: MIDAZOLAM
     Route: 040
  2. BUPIVACAINE [Suspect]
     Active Substance: BUPIVACAINE
     Indication: Spinal anaesthesia
  3. LACTATED RINGERS SOLUTION [Concomitant]
     Active Substance: CALCIUM CHLORIDE\POTASSIUM CHLORIDE\SODIUM CHLORIDE\SODIUM LACTATE
     Route: 040
  4. FENTANYL [Suspect]
     Active Substance: FENTANYL
     Route: 040
  5. DICLOFENAC [Concomitant]
     Active Substance: DICLOFENAC
     Route: 040
  6. ONDANSETRON [Concomitant]
     Active Substance: ONDANSETRON
     Route: 040

REACTIONS (1)
  - Acute postoperative sialadenitis [Recovered/Resolved]
